FAERS Safety Report 25334445 (Version 1)
Quarter: 2025Q2

REPORT INFORMATION
  Report Type: Report from Study
  Country: US (occurrence: US)
  Receive Date: 20250520
  Receipt Date: 20250520
  Transmission Date: 20250716
  Serious: No
  Sender: GRIFOLS
  Company Number: US-IGSA-BIG0035097

PATIENT
  Age: 35 Year
  Sex: Female
  Weight: 129.71 kg

DRUGS (35)
  1. GAMUNEX-C [Suspect]
     Active Substance: HUMAN IMMUNOGLOBULIN G
     Indication: Primary immunodeficiency syndrome
     Dosage: 20 GRAM, Q.WK.
     Route: 058
  2. GAMUNEX-C [Suspect]
     Active Substance: HUMAN IMMUNOGLOBULIN G
     Dosage: 40 G OVER 4 HOURS, Q.WK.
     Route: 042
  3. CHANTIX [Concomitant]
     Active Substance: VARENICLINE TARTRATE
  4. LYBALVI [Concomitant]
     Active Substance: OLANZAPINE\SAMIDORPHAN L-MALATE
  5. ATORVASTATIN [Concomitant]
     Active Substance: ATORVASTATIN
  6. BACLOFEN [Concomitant]
     Active Substance: BACLOFEN
  7. BENZTROPINE MESYLATE [Concomitant]
     Active Substance: BENZTROPINE MESYLATE
     Route: 048
  8. BIOTIN [Concomitant]
     Active Substance: BIOTIN
  9. BUSPIRONE HCL [Concomitant]
     Active Substance: BUSPIRONE HYDROCHLORIDE
  10. CRANBERRY [Concomitant]
     Active Substance: CRANBERRY
  11. DIFLUCAN [Concomitant]
     Active Substance: FLUCONAZOLE
     Route: 048
  12. GABAPENTIN [Concomitant]
     Active Substance: GABAPENTIN
  13. HYDROXYZINE [Concomitant]
     Active Substance: HYDROXYZINE HYDROCHLORIDE
     Route: 048
  14. IBUPROFEN [Concomitant]
     Active Substance: IBUPROFEN
     Indication: Premedication
  15. IRON [Concomitant]
     Active Substance: IRON
  16. KLONOPIN [Concomitant]
     Active Substance: CLONAZEPAM
     Route: 048
  17. LAMICTAL [Concomitant]
     Active Substance: LAMOTRIGINE
     Route: 048
  18. METFORMIN HYDROCHLORIDE [Concomitant]
     Active Substance: METFORMIN HYDROCHLORIDE
  19. MUCINEX [Concomitant]
     Active Substance: GUAIFENESIN
  20. ONDANSETRON [Concomitant]
     Active Substance: ONDANSETRON
     Route: 048
  21. PEPCID [Concomitant]
     Active Substance: FAMOTIDINE
     Route: 048
  22. POTASSIUM [Concomitant]
     Active Substance: POTASSIUM
     Route: 048
  23. PRAZOSIN HYDROCHLORIDE [Concomitant]
     Active Substance: PRAZOSIN HYDROCHLORIDE
  24. PROPRANOLOL [Concomitant]
     Active Substance: PROPRANOLOL HYDROCHLORIDE
  25. SAPHRIS [Concomitant]
     Active Substance: ASENAPINE MALEATE
     Route: 060
  26. SEROQUEL [Concomitant]
     Active Substance: QUETIAPINE FUMARATE
     Route: 048
  27. STOOL SOFTENER (DOCUSATE) [Concomitant]
     Active Substance: DOCUSATE
     Route: 048
  28. TRULICITY [Concomitant]
     Active Substance: DULAGLUTIDE
  29. ACETAMINOPHEN [Concomitant]
     Active Substance: ACETAMINOPHEN
  30. VITAMIN C [Concomitant]
     Active Substance: ASCORBIC ACID
     Route: 048
  31. VITAMIN D3 [Concomitant]
     Active Substance: CHOLECALCIFEROL
  32. ZINC [Concomitant]
     Active Substance: ZINC
     Route: 048
  33. ZYPREXA [Concomitant]
     Active Substance: OLANZAPINE
     Route: 048
  34. TYLENOL [Concomitant]
     Active Substance: ACETAMINOPHEN
     Indication: Premedication
  35. HYDROXYZINE [Concomitant]
     Active Substance: HYDROXYZINE HYDROCHLORIDE
     Indication: Premedication

REACTIONS (9)
  - Erythema [Recovering/Resolving]
  - Rash [Recovering/Resolving]
  - Pruritus [Recovering/Resolving]
  - Cluster headache [Recovering/Resolving]
  - Flushing [Recovering/Resolving]
  - Feeling hot [Recovering/Resolving]
  - Palpitations [Recovering/Resolving]
  - Fatigue [Recovering/Resolving]
  - Pain [Recovering/Resolving]

NARRATIVE: CASE EVENT DATE: 20250505
